FAERS Safety Report 8710180 (Version 2)
Quarter: 2012Q4

REPORT INFORMATION
  Report Type: 
  Country: US (occurrence: US)
  Receive Date: 20120806
  Receipt Date: 20121010
  Transmission Date: 20130627
  Serious: Yes (Other)
  Sender: FDA-Public Use
  Company Number: CHPA2012US016741

PATIENT
  Age: 79 Year
  Sex: Female

DRUGS (4)
  1. EXCEDRIN MIGRAINE [Suspect]
     Indication: PAIN
     Dosage: 1 DF, QD PRN
     Route: 048
  2. EXCEDRIN TENSION HEADACHE [Concomitant]
     Indication: PAIN
     Dosage: Unk, Unk
     Route: 048
  3. EXCEDRIN [Concomitant]
     Dosage: Unk, Unk
  4. ASPIRIN ^BAYER^ [Concomitant]
     Dosage: 3 DF, ONCE/SINGLE
     Route: 048

REACTIONS (9)
  - Intervertebral disc disorder [Unknown]
  - Rib fracture [Recovered/Resolved]
  - Road traffic accident [Recovered/Resolved]
  - Headache [Not Recovered/Not Resolved]
  - Disease recurrence [Not Recovered/Not Resolved]
  - Pain in extremity [Unknown]
  - Therapeutic response unexpected [Unknown]
  - Off label use [Unknown]
  - Underdose [Unknown]
